FAERS Safety Report 21967845 (Version 5)
Quarter: 2024Q2

REPORT INFORMATION
  Report Type: Report from Study
  Country: US (occurrence: US)
  Receive Date: 20230208
  Receipt Date: 20240614
  Transmission Date: 20240715
  Serious: No
  Sender: FDA-Public Use
  Company Number: US-002147023-NVSC2023US022986

PATIENT
  Sex: Female

DRUGS (12)
  1. KESIMPTA [Suspect]
     Active Substance: OFATUMUMAB
     Indication: Multiple sclerosis
     Dosage: 20 MG, QMO
     Route: 058
     Dates: start: 20230105
  2. KESIMPTA [Suspect]
     Active Substance: OFATUMUMAB
     Dosage: UNK (FIRST LOADING DOSE)
     Route: 065
     Dates: start: 20230119
  3. KESIMPTA [Suspect]
     Active Substance: OFATUMUMAB
     Dosage: 20 MG, QMO
     Route: 058
  4. OXYBUTYNIN [Concomitant]
     Active Substance: OXYBUTYNIN\OXYBUTYNIN CHLORIDE
     Indication: Product used for unknown indication
     Dosage: 5 MG, BID
     Route: 065
  5. SERTRALINE [Concomitant]
     Active Substance: SERTRALINE HYDROCHLORIDE
     Indication: Product used for unknown indication
     Dosage: 100 MG, QD
     Route: 065
  6. TOPIRAMATE [Concomitant]
     Active Substance: TOPIRAMATE
     Indication: Product used for unknown indication
     Dosage: 100 MG, Q12H
     Route: 065
  7. DIAMOX SEQUELS [Concomitant]
     Active Substance: ACETAZOLAMIDE
     Indication: Product used for unknown indication
     Dosage: 250 MG, TID
     Route: 065
  8. BACLOFEN [Concomitant]
     Active Substance: BACLOFEN
     Indication: Product used for unknown indication
     Dosage: 10 MG, QID
     Route: 065
  9. CETIRIZINE [Concomitant]
     Active Substance: CETIRIZINE HYDROCHLORIDE
     Indication: Product used for unknown indication
     Dosage: 10 MG, QD
     Route: 065
  10. HYDROXYCHLOROQUINE [Concomitant]
     Active Substance: HYDROXYCHLOROQUINE
     Indication: Product used for unknown indication
     Dosage: 200 MG, QD
     Route: 065
  11. OMEPRAZOLE [Concomitant]
     Active Substance: DONEPEZIL HYDROCHLORIDE\OMEPRAZOLE\OMEPRAZOLE MAGNESIUM
     Indication: Product used for unknown indication
     Dosage: 20 MG
     Route: 065
  12. NAPROXEN [Concomitant]
     Active Substance: NAPROXEN
     Indication: Product used for unknown indication
     Dosage: UNK
     Route: 065

REACTIONS (11)
  - Muscle spasms [Not Recovered/Not Resolved]
  - Brain fog [Not Recovered/Not Resolved]
  - Fatigue [Recovering/Resolving]
  - Injection site pain [Not Recovered/Not Resolved]
  - Headache [Recovering/Resolving]
  - Oropharyngeal pain [Recovering/Resolving]
  - Nasal congestion [Recovering/Resolving]
  - Hyperhidrosis [Recovering/Resolving]
  - Diarrhoea [Unknown]
  - SARS-CoV-2 test positive [Unknown]
  - Chills [Recovering/Resolving]
